FAERS Safety Report 23687502 (Version 1)
Quarter: 2024Q1

REPORT INFORMATION
  Report Type: Report from Study
  Country: US (occurrence: None)
  Receive Date: 20240329
  Receipt Date: 20240329
  Transmission Date: 20240410
  Serious: Yes (Other)
  Sender: FDA-Public Use
  Company Number: 2024A068981

PATIENT
  Sex: Male
  Weight: 39.9 kg

DRUGS (1)
  1. KOSELUGO [Suspect]
     Active Substance: SELUMETINIB
     Indication: Neurofibromatosis
     Route: 048
     Dates: start: 20220414

REACTIONS (3)
  - Neoplasm [Recovering/Resolving]
  - Visual impairment [Recovering/Resolving]
  - Skin irritation [Recovering/Resolving]
